FAERS Safety Report 7547135-2 (Version None)
Quarter: 2011Q2

REPORT INFORMATION
  Report Type: 
  Country: None (occurrence: None)
  Receive Date: 20110614
  Receipt Date: 20110610
  Transmission Date: 20111010
  Serious: Yes (Other)
  Sender: FDA-Public Use
  Company Number: IT-TEVA-285755USA

PATIENT
  Age: 44 Year
  Sex: Male
  Weight: 75 kg

DRUGS (2)
  1. CLONAZEPAM [Suspect]
     Dosage: 40 MILLIGRAM;
     Route: 048
     Dates: start: 20110603
  2. PIMOZIDE TABLETS [Suspect]
     Dosage: 40 MILLIGRAM;
     Route: 048
     Dates: start: 20110603

REACTIONS (2)
  - SELF INJURIOUS BEHAVIOUR [None]
  - MULTIPLE DRUG OVERDOSE INTENTIONAL [None]
